FAERS Safety Report 11721326 (Version 1)
Quarter: 2015Q4

REPORT INFORMATION
  Report Type: Spontaneous
  Country: US (occurrence: US)
  Receive Date: 20151111
  Receipt Date: 20151111
  Transmission Date: 20160304
  Serious: No
  Sender: FDA-Public Use
  Company Number: US-009507513-1511USA005628

PATIENT
  Age: 61 Year
  Sex: Male

DRUGS (5)
  1. EPZICOM [Concomitant]
     Active Substance: ABACAVIR SULFATE\LAMIVUDINE
  2. NORVASC [Concomitant]
     Active Substance: AMLODIPINE BESYLATE
  3. PRINIVIL [Concomitant]
     Active Substance: LISINOPRIL
     Route: 048
  4. XARELTO [Concomitant]
     Active Substance: RIVAROXABAN
  5. ISENTRESS [Suspect]
     Active Substance: RALTEGRAVIR POTASSIUM
     Indication: HIV INFECTION
     Dosage: 1 TABLET TWICE DAILY
     Route: 048

REACTIONS (7)
  - CD4/CD8 ratio decreased [Unknown]
  - Lymphocyte count increased [Unknown]
  - CD8 lymphocytes increased [Unknown]
  - Infection [Unknown]
  - White blood cell count decreased [Unknown]
  - CD4 lymphocytes decreased [Unknown]
  - Granulocyte count decreased [Unknown]

NARRATIVE: CASE EVENT DATE: 201505
